FAERS Safety Report 8906117 (Version 3)
Quarter: 2013Q1

REPORT INFORMATION
  Report Type: Spontaneous
  Country: US (occurrence: US)
  Receive Date: 20121110
  Receipt Date: 20130110
  Transmission Date: 20140127
  Serious: Yes (Other)
  Sender: FDA-Public Use
  Company Number: US-009507513-1211USA001293

PATIENT
  Age: 18 Year
  Sex: Female
  Weight: 56.69 kg

DRUGS (1)
  1. IMPLANON [Suspect]
     Indication: CONTRACEPTION
     Dosage: EVERY 3 YEARS
     Route: 059
     Dates: start: 20120126

REACTIONS (4)
  - Loss of consciousness [Unknown]
  - Pruritus [Unknown]
  - Urticaria [Unknown]
  - Metrorrhagia [Unknown]
